FAERS Safety Report 21692892 (Version 1)
Quarter: 2022Q4

REPORT INFORMATION
  Report Type: Spontaneous
  Country: US (occurrence: None)
  Receive Date: 20221206
  Receipt Date: 20221206
  Transmission Date: 20230112
  Serious: No
  Sender: FDA-Public Use
  Company Number: None

PATIENT
  Sex: Female

DRUGS (1)
  1. HUMIRA [Suspect]
     Active Substance: ADALIMUMAB
     Indication: Rheumatoid arthritis
     Dosage: 40MG EVERY WEEK UNDER THE SKIN
     Route: 058
     Dates: start: 202211

REACTIONS (4)
  - Peripheral swelling [None]
  - Loss of personal independence in daily activities [None]
  - Pain [None]
  - Musculoskeletal stiffness [None]
